FAERS Safety Report 15686449 (Version 1)
Quarter: 2018Q4

REPORT INFORMATION
  Report Type: Spontaneous
  Country: CA (occurrence: CA)
  Receive Date: 20181204
  Receipt Date: 20181204
  Transmission Date: 20190205
  Serious: Yes (Hospitalization)
  Sender: FDA-Public Use
  Company Number: CA-ICU MEDICAL, INC.-ICU2018CA00093

PATIENT

DRUGS (3)
  1. MORPHINE SULFATE INJECTION [Suspect]
     Active Substance: MORPHINE SULFATE
     Indication: ADENOTONSILLECTOMY
     Dosage: 2.0 MILLIGRAM
     Route: 042
  2. SEVOFLURANE. [Suspect]
     Active Substance: SEVOFLURANE
     Indication: ADENOTONSILLECTOMY
     Dosage: UNK
     Route: 055
  3. PROPOFOL. [Suspect]
     Active Substance: PROPOFOL
     Indication: ADENOTONSILLECTOMY
     Dosage: 100 MICROGRAM
     Route: 042

REACTIONS (4)
  - Depressed level of consciousness [Unknown]
  - Wheezing [Unknown]
  - Respiratory depression [Unknown]
  - Stridor [Unknown]
